FAERS Safety Report 6228216-2 (Version None)
Quarter: 2009Q2

REPORT INFORMATION
  Report Type: 
  Country: None (occurrence: None)
  Receive Date: 20090610
  Receipt Date: 20090610
  Transmission Date: 20091009
  Serious: Yes (Other)
  Sender: FDA-Public Use
  Company Number: None

PATIENT
  Sex: Male
  Weight: 99.7913 kg

DRUGS (2)
  1. REVLIMID [Suspect]
     Indication: MULTIPLE MYELOMA
     Dosage: 25 MG QD X 21 D MONTHLY SEVEN COURSES PO
     Route: 048
     Dates: start: 20080701, end: 20090202
  2. DECADRON [Suspect]
     Dosage: 40 MG MG Q WEDNESDAYS TEN COURSES PO
     Dates: start: 20080701, end: 20090428

REACTIONS (7)
  - ANAEMIA [None]
  - BLOOD THYROID STIMULATING HORMONE INCREASED [None]
  - BLOOD VISCOSITY INCREASED [None]
  - HYPOTHYROIDISM [None]
  - INTERSTITIAL LUNG DISEASE [None]
  - MYXOEDEMA [None]
  - TEMPERATURE INTOLERANCE [None]
